FAERS Safety Report 17957975 (Version 1)
Quarter: 2020Q2

REPORT INFORMATION
  Report Type: Spontaneous
  Country: JP (occurrence: JP)
  Receive Date: 20200629
  Receipt Date: 20200629
  Transmission Date: 20200714
  Serious: Yes (Other)
  Sender: FDA-Public Use
  Company Number: JP-009507513-2006JPN010181

PATIENT
  Sex: Female

DRUGS (3)
  1. ELDECALCITOL [Concomitant]
     Active Substance: ELDECALCITOL
     Dosage: UNK
     Route: 048
  2. REFLEX [Suspect]
     Active Substance: MIRTAZAPINE
     Dosage: 3.75 MILLIGRAM
     Route: 048
  3. REFLEX [Suspect]
     Active Substance: MIRTAZAPINE
     Dosage: UNK
     Route: 048

REACTIONS (6)
  - Bipolar disorder [Unknown]
  - Euphoric mood [Unknown]
  - Anxiety [Unknown]
  - Agitation [Unknown]
  - Nausea [Unknown]
  - Overdose [Unknown]
